FAERS Safety Report 8604784-8 (Version None)
Quarter: 2012Q3

REPORT INFORMATION
  Report Type: 
  Country: None (occurrence: None)
  Receive Date: 20120820
  Receipt Date: 20120810
  Transmission Date: 20120928
  Serious: Yes (Hospitalization)
  Sender: FDA-Public Use
  Company Number: BR-ELI_LILLY_AND_COMPANY-BR201203005114

PATIENT
  Age: 74 Year
  Sex: Male

DRUGS (4)
  1. FUROSEMIDA                         /00032601/ [Concomitant]
  2. FORTEO [Suspect]
     Indication: OSTEOPOROSIS
     Dosage: UNK, UNKNOWN
     Route: 058
     Dates: end: 20100101
  3. ENALAPRIL MALEATE [Concomitant]
     Dosage: UNK, UNKNOWN
     Route: 065
  4. METFORMIN HCL [Concomitant]
     Dosage: UNK, UNKNOWN
     Route: 065

REACTIONS (5)
  - PAIN [None]
  - HYPOGLYCAEMIA [None]
  - LUMBAR VERTEBRAL FRACTURE [None]
  - HOSPITALISATION [None]
  - HYPERCALCAEMIA [None]
